FAERS Safety Report 5413707-4 (Version None)
Quarter: 2007Q3

REPORT INFORMATION
  Report Type: 
  Country: None (occurrence: None)
  Receive Date: 20070814
  Receipt Date: 20070808
  Transmission Date: 20080115
  Serious: Yes (Death, Hospitalization)
  Sender: FDA-Public Use
  Company Number: B0476517A

PATIENT
  Age: 0 Year
  Sex: Male
  Weight: 3.2 kg

DRUGS (4)
  1. TRIZIVIR [Suspect]
     Indication: ANTIVIRAL PROPHYLAXIS
     Dosage: 1TAB TWICE PER DAY
     Route: 048
     Dates: start: 20070413, end: 20070618
  2. GENTAMICIN [Concomitant]
     Dosage: 7.9MG TWICE PER DAY
     Route: 042
  3. AMPICILLIN [Concomitant]
     Dosage: 159MG TWICE PER DAY
     Route: 042
  4. ZIDOVUDINE [Concomitant]
     Dosage: 1.25MG TWICE PER DAY

REACTIONS (5)
  - INTERCOSTAL RETRACTION [None]
  - JAUNDICE [None]
  - NASAL FLARING [None]
  - PALLOR [None]
  - SEPSIS [None]
